FAERS Safety Report 5921250-9 (Version None)
Quarter: 2008Q4

REPORT INFORMATION
  Report Type: 
  Country: None (occurrence: None)
  Receive Date: 20081014
  Receipt Date: 20080929
  Transmission Date: 20090506
  Serious: Yes (Hospitalization, Disabling)
  Sender: FDA-Public Use
  Company Number: 2008S1017604

PATIENT
  Age: 65 Year
  Sex: Female

DRUGS (2)
  1. AMITRIPTYLINE HYDROCHLORIDE [Suspect]
     Indication: INTENTIONAL OVERDOSE
     Dosage: ORAL
     Route: 048
  2. INSULIN [Concomitant]

REACTIONS (5)
  - AGGRESSION [None]
  - BLISTER [None]
  - DIABETIC KETOACIDOTIC HYPERGLYCAEMIC COMA [None]
  - INCORRECT DOSE ADMINISTERED [None]
  - TREATMENT NONCOMPLIANCE [None]
